FAERS Safety Report 5823901-6 (Version None)
Quarter: 2008Q3

REPORT INFORMATION
  Report Type: 
  Country: None (occurrence: None)
  Receive Date: 20080724
  Receipt Date: 20080716
  Transmission Date: 20090109
  Serious: Yes (Other)
  Sender: FDA-Public Use
  Company Number: CHPA2008US11959

PATIENT
  Age: 12 Year
  Sex: Male

DRUGS (1)
  1. EX-LAX LAXATIVE UNKNOWN FORMULATION (NCH) (UNKNOWN) UNKNOWN [Suspect]
     Indication: CONSTIPATION
     Dosage: 18 DF,ORAL
     Route: 048
     Dates: start: 20080715

REACTIONS (2)
  - OVERDOSE [None]
  - RECTAL HAEMORRHAGE [None]
